FAERS Safety Report 18941769 (Version 1)
Quarter: 2021Q1

REPORT INFORMATION
  Report Type: Spontaneous
  Country: CA (occurrence: CA)
  Receive Date: 20210225
  Receipt Date: 20210225
  Transmission Date: 20210420
  Serious: Yes (Life-Threatening, Other)
  Sender: FDA-Public Use
  Company Number: CA-GLAXOSMITHKLINE-CACH2021AMR009259

PATIENT
  Age: 52 Year
  Sex: Male

DRUGS (3)
  1. VOLTAREN EMULGEL [Suspect]
     Active Substance: DICLOFENAC DIETHYLAMINE
     Indication: ANTIINFLAMMATORY THERAPY
     Dosage: AS REQUIRED
     Route: 061
  2. TEVA?NAPROXEN [Suspect]
     Active Substance: NAPROXEN
     Indication: MUSCLE SPASMS
     Dosage: 500 MG, 1 EVERY 1 DAYS
     Route: 048
  3. TEVA?NAPROXEN [Suspect]
     Active Substance: NAPROXEN
     Indication: ANTIINFLAMMATORY THERAPY

REACTIONS (5)
  - Dyspnoea [Unknown]
  - Palpitations [Unknown]
  - Chest pain [Unknown]
  - Suffocation feeling [Unknown]
  - Emotional distress [Unknown]
